FAERS Safety Report 10890556 (Version 1)
Quarter: 2015Q1

REPORT INFORMATION
  Report Type: Report from Study
  Country: CA (occurrence: CA)
  Receive Date: 20150305
  Receipt Date: 20150305
  Transmission Date: 20150721
  Serious: Yes (Other)
  Sender: FDA-Public Use
  Company Number: CA-AMGEN-CANSL2015019842

PATIENT
  Age: 49 Year
  Sex: Female

DRUGS (1)
  1. NEUPOGEN [Suspect]
     Active Substance: FILGRASTIM
     Indication: PRODUCT USED FOR UNKNOWN INDICATION
     Dosage: UNK, 1ML/300MCG
     Route: 065
     Dates: start: 20150210, end: 20150302

REACTIONS (5)
  - Chest pain [Recovering/Resolving]
  - Pelvic pain [Recovering/Resolving]
  - Abasia [Recovering/Resolving]
  - Bone pain [Recovering/Resolving]
  - Adverse drug reaction [Recovering/Resolving]

NARRATIVE: CASE EVENT DATE: 2015
